FAERS Safety Report 17966821 (Version 4)
Quarter: 2020Q4

REPORT INFORMATION
  Report Type: Report from Study
  Country: None (occurrence: ZA)
  Receive Date: 20200630
  Receipt Date: 20201007
  Transmission Date: 20210113
  Serious: Yes (Hospitalization)
  Sender: FDA-Public Use
  Company Number: ZA-ABBVIE-20K-143-3464254-00

PATIENT
  Age: 60 Year
  Sex: Female

DRUGS (3)
  1. HUMIRA [Suspect]
     Active Substance: ADALIMUMAB
     Indication: RHEUMATOID ARTHRITIS
     Route: 058
     Dates: start: 20200602, end: 20200616
  2. ESCITALOPRAM [Concomitant]
     Active Substance: ESCITALOPRAM OXALATE
     Indication: DEPRESSION
     Route: 048
  3. HUMIRA [Suspect]
     Active Substance: ADALIMUMAB
     Route: 058
     Dates: start: 20200928

REACTIONS (11)
  - Sinusitis [Recovering/Resolving]
  - Device loosening [Not Recovered/Not Resolved]
  - Emotional disorder [Unknown]
  - Femoral hernia [Recovered/Resolved]
  - Injection site swelling [Not Recovered/Not Resolved]
  - Depressed mood [Unknown]
  - Arthralgia [Not Recovered/Not Resolved]
  - Injection site hypersensitivity [Unknown]
  - Bronchitis [Recovering/Resolving]
  - Aspiration joint [Not Recovered/Not Resolved]
  - Injection site erythema [Not Recovered/Not Resolved]

NARRATIVE: CASE EVENT DATE: 2020
